FAERS Safety Report 12418907 (Version 4)
Quarter: 2017Q4

REPORT INFORMATION
  Report Type: Spontaneous
  Country: US (occurrence: US)
  Receive Date: 20160531
  Receipt Date: 20171031
  Transmission Date: 20180320
  Serious: Yes (Hospitalization, Other)
  Sender: FDA-Public Use
  Company Number: US-AUROBINDO-AUR-APL-2016-06495

PATIENT
  Age: 37 Year
  Sex: Male

DRUGS (6)
  1. OLANZAPINE. [Concomitant]
     Active Substance: OLANZAPINE
     Indication: MALAISE
     Route: 065
  2. IBUPROFEN. [Suspect]
     Active Substance: IBUPROFEN
     Dosage: 30 PILLS (400 MG) WITH A TOTAL DOSE OF 12 G
  3. AMLODIPINE [Concomitant]
     Active Substance: AMLODIPINE BESYLATE
     Indication: HYPERTENSION
     Route: 065
  4. IBUPROFEN. [Suspect]
     Active Substance: IBUPROFEN
     Indication: PRODUCT USED FOR UNKNOWN INDICATION
     Dosage: 12 G, 30 PILLS (400 MG) WITH A TOTAL DOSE OF 12 G
  5. LISINOPRIL. [Concomitant]
     Active Substance: LISINOPRIL
     Indication: HYPERTENSION
     Route: 065
  6. HALOPERIDOL. [Concomitant]
     Active Substance: HALOPERIDOL
     Indication: MALAISE
     Route: 065

REACTIONS (13)
  - Thrombotic thrombocytopenic purpura [Recovering/Resolving]
  - Intentional overdose [Unknown]
  - Conjunctivitis [Unknown]
  - Muscular weakness [Unknown]
  - Heart rate increased [Unknown]
  - Cerebrovascular accident [Unknown]
  - Electrocardiogram T wave inversion [Unknown]
  - Sinus tachycardia [Unknown]
  - Ocular icterus [Unknown]
  - Haematuria [Recovered/Resolved]
  - Suicide attempt [Unknown]
  - Acute myocardial infarction [Recovering/Resolving]
  - Vitiligo [Unknown]
